FAERS Safety Report 22079721 (Version 3)
Quarter: 2023Q2

REPORT INFORMATION
  Report Type: Spontaneous
  Country: US (occurrence: US)
  Receive Date: 20230309
  Receipt Date: 20230606
  Transmission Date: 20230722
  Serious: Yes (Hospitalization, Other)
  Sender: FDA-Public Use
  Company Number: US-PFIZER INC-PV202300045809

PATIENT
  Age: 84 Year
  Sex: Male

DRUGS (6)
  1. VYNDAMAX [Suspect]
     Active Substance: TAFAMIDIS
     Indication: Cardiac amyloidosis
     Dosage: 61 MG, 1X/DAY
     Route: 048
  2. ATORVASTATIN [Concomitant]
     Active Substance: ATORVASTATIN
     Dosage: 20 MG, 1X/DAY
     Route: 048
  3. FLUDROCORTISONE [Concomitant]
     Active Substance: FLUDROCORTISONE
     Dosage: 0.1 MG, 1X/DAY
     Route: 048
  4. TRELEGY ELLIPTA [Concomitant]
     Active Substance: FLUTICASONE FUROATE\UMECLIDINIUM BROMIDE\VILANTEROL TRIFENATATE
     Dosage: 1 DF, 1X/DAY [1 PUFF(S) INHALATION ONCE EVERY DAY AT SAME TIME]
  5. LASIX [Concomitant]
     Active Substance: FUROSEMIDE
     Indication: Swelling
     Dosage: 20 MG, AS NEEDED [ONCE EVERY DAY AS NEEDED]
     Route: 048
  6. MIDODRINE [Concomitant]
     Active Substance: MIDODRINE
     Dosage: 10 MG, 3X/DAY [10 MILLIGRAM 2 TAB(S) BY MOUTH THREE TIMES DAILY]

REACTIONS (25)
  - Dizziness [Unknown]
  - Dyspnoea [Unknown]
  - Orthostatic hypotension [Unknown]
  - Fall [Unknown]
  - Muscular weakness [Unknown]
  - Atrial fibrillation [Unknown]
  - Acute kidney injury [Unknown]
  - Bradycardia [Unknown]
  - Cerebral atrophy [Unknown]
  - Myocardial infarction [Unknown]
  - Chronic obstructive pulmonary disease [Unknown]
  - Chronic left ventricular failure [Unknown]
  - Troponin increased [Unknown]
  - Skin hyperpigmentation [Unknown]
  - Skin atrophy [Unknown]
  - Skin abrasion [Unknown]
  - Cerebral ventricle dilatation [Unknown]
  - Supraventricular extrasystoles [Unknown]
  - Atrioventricular block first degree [Unknown]
  - Hypertrophy [Unknown]
  - QRS axis abnormal [Unknown]
  - Blood albumin decreased [Unknown]
  - Blood calcium decreased [Unknown]
  - Carbon dioxide decreased [Unknown]
  - Red cell distribution width increased [Unknown]

NARRATIVE: CASE EVENT DATE: 20220401
